FAERS Safety Report 19052127 (Version 1)
Quarter: 2021Q1

REPORT INFORMATION
  Report Type: Spontaneous
  Country: US (occurrence: US)
  Receive Date: 20210324
  Receipt Date: 20210324
  Transmission Date: 20210420
  Serious: Yes (Death, Other)
  Sender: FDA-Public Use
  Company Number: US-CIPLA LTD.-2021US02253

PATIENT

DRUGS (16)
  1. AZACITIDINE. [Suspect]
     Active Substance: AZACITIDINE
     Indication: B PRECURSOR TYPE ACUTE LEUKAEMIA
     Dosage: UNK, INDUCTION CHEMOTHERAPY PER COG PROTOCOL AALL15P1
     Route: 065
  2. CYCLOPHOSPHAMIDE. [Suspect]
     Active Substance: CYCLOPHOSPHAMIDE
     Indication: B PRECURSOR TYPE ACUTE LEUKAEMIA
     Dosage: UNK, INDUCTION CHEMOTHERAPY PER COG PROTOCOL AALL15P1
     Route: 065
  3. DEXAMETHASONE. [Suspect]
     Active Substance: DEXAMETHASONE
     Indication: B PRECURSOR TYPE ACUTE LEUKAEMIA
     Dosage: UNK, INDUCTION CHEMOTHERAPY PER COG PROTOCOL AALL15P1
     Route: 065
  4. MESNA. [Suspect]
     Active Substance: MESNA
     Indication: B PRECURSOR TYPE ACUTE LEUKAEMIA
     Dosage: UNK, INDUCTION CHEMOTHERAPY PER COG PROTOCOL AALL15P1
     Route: 065
  5. METHOTREXATE. [Suspect]
     Active Substance: METHOTREXATE
     Indication: B PRECURSOR TYPE ACUTE LEUKAEMIA
     Dosage: UNK, INDUCTION CHEMOTHERAPY PER COG PROTOCOL AALL15P1
     Route: 065
  6. HYDROCORTISONE. [Suspect]
     Active Substance: HYDROCORTISONE
     Indication: B PRECURSOR TYPE ACUTE LEUKAEMIA
     Dosage: UNK, INDUCTION CHEMOTHERAPY PER COG PROTOCOL AALL15P1
     Route: 065
  7. BLINATUMOMAB [Suspect]
     Active Substance: BLINATUMOMAB
     Indication: B PRECURSOR TYPE ACUTE LEUKAEMIA
     Dosage: UNK, BRIDGE THERAPY
     Route: 065
  8. DAUNORUBICIN [Suspect]
     Active Substance: DAUNORUBICIN
     Indication: B PRECURSOR TYPE ACUTE LEUKAEMIA
     Dosage: UNK, INDUCTION CHEMOTHERAPY PER COG PROTOCOL AALL15P1
     Route: 065
  9. FOLINIC ACID [Suspect]
     Active Substance: LEUCOVORIN
     Indication: B PRECURSOR TYPE ACUTE LEUKAEMIA
     Dosage: UNK, INDUCTION CHEMOTHERAPY PER COG PROTOCOL AALL15P1
     Route: 065
  10. FLUDARABINE [Suspect]
     Active Substance: FLUDARABINE PHOSPHATE
     Indication: B PRECURSOR TYPE ACUTE LEUKAEMIA
     Dosage: UNK, BRIDGE THERAPY
     Route: 065
  11. MERCAPTOPURINE. [Suspect]
     Active Substance: MERCAPTOPURINE
     Indication: B PRECURSOR TYPE ACUTE LEUKAEMIA
     Dosage: UNK, INDUCTION CHEMOTHERAPY PER COG PROTOCOL AALL15P1
     Route: 065
  12. VINCRISTINE [Suspect]
     Active Substance: VINCRISTINE
     Indication: B PRECURSOR TYPE ACUTE LEUKAEMIA
     Dosage: UNK, INDUCTION CHEMOTHERAPY PER COG PROTOCOL AALL15P1
     Route: 065
  13. IDARUBICIN [Suspect]
     Active Substance: IDARUBICIN
     Indication: B PRECURSOR TYPE ACUTE LEUKAEMIA
     Dosage: UNK, BRIDGE THERAPY
     Route: 065
  14. PEGASPARGASE [Suspect]
     Active Substance: PEGASPARGASE
     Indication: B PRECURSOR TYPE ACUTE LEUKAEMIA
     Dosage: UNK, INDUCTION CHEMOTHERAPY PER COG PROTOCOL AALL15P1
     Route: 065
  15. CYTARABINE. [Suspect]
     Active Substance: CYTARABINE
     Indication: B PRECURSOR TYPE ACUTE LEUKAEMIA
     Dosage: UNK, INDUCTION CHEMOTHERAPY PER COG PROTOCOL AALL15P1
     Route: 065
  16. TIOGUANINE [Suspect]
     Active Substance: THIOGUANINE ANHYDROUS
     Indication: B PRECURSOR TYPE ACUTE LEUKAEMIA
     Dosage: UNK, INDUCTION CHEMOTHERAPY PER COG PROTOCOL AALL15P1
     Route: 065

REACTIONS (1)
  - Death [Fatal]
